FAERS Safety Report 14694869 (Version 8)
Quarter: 2022Q2

REPORT INFORMATION
  Report Type: Report from Study
  Country: JP (occurrence: JP)
  Receive Date: 20180329
  Receipt Date: 20220426
  Transmission Date: 20220721
  Serious: Yes (Hospitalization, Other)
  Sender: FDA-Public Use
  Company Number: JP-BIOGEN-2018BI00543912

PATIENT
  Age: 4 Month
  Sex: Male
  Weight: 4.3 kg

DRUGS (30)
  1. SPINRAZA [Suspect]
     Active Substance: NUSINERSEN
     Indication: Spinal muscular atrophy
     Route: 050
     Dates: start: 20171011, end: 20171011
  2. SPINRAZA [Suspect]
     Active Substance: NUSINERSEN
     Route: 050
     Dates: start: 20171025, end: 20171025
  3. SPINRAZA [Suspect]
     Active Substance: NUSINERSEN
     Route: 050
     Dates: start: 20171108, end: 20171108
  4. SPINRAZA [Suspect]
     Active Substance: NUSINERSEN
     Route: 050
     Dates: start: 20171214, end: 20171214
  5. SPINRAZA [Suspect]
     Active Substance: NUSINERSEN
     Route: 050
     Dates: start: 20180417, end: 20180417
  6. SPINRAZA [Suspect]
     Active Substance: NUSINERSEN
     Route: 050
     Dates: start: 20180828, end: 20180828
  7. SPINRAZA [Suspect]
     Active Substance: NUSINERSEN
     Route: 050
     Dates: start: 20190129, end: 20190923
  8. SPINRAZA [Suspect]
     Active Substance: NUSINERSEN
     Route: 050
     Dates: start: 20190924
  9. SPINRAZA [Suspect]
     Active Substance: NUSINERSEN
     Dosage: THE 10TH, 11TH AND 12TH ADMINISTRATIONS
     Route: 050
  10. SPINRAZA [Suspect]
     Active Substance: NUSINERSEN
     Route: 050
     Dates: start: 20210202, end: 20211012
  11. HEPARINOID [Concomitant]
     Indication: Eczema infantile
     Route: 050
  12. EMLA [Concomitant]
     Active Substance: LIDOCAINE\PRILOCAINE
     Indication: Anaesthesia procedure
     Route: 050
     Dates: start: 20171011, end: 20171011
  13. EMLA [Concomitant]
     Active Substance: LIDOCAINE\PRILOCAINE
     Route: 050
     Dates: start: 20171025, end: 20171025
  14. EMLA [Concomitant]
     Active Substance: LIDOCAINE\PRILOCAINE
     Route: 050
     Dates: start: 20171108, end: 20171108
  15. EMLA [Concomitant]
     Active Substance: LIDOCAINE\PRILOCAINE
     Route: 050
     Dates: start: 20171214, end: 20171214
  16. EMLA [Concomitant]
     Active Substance: LIDOCAINE\PRILOCAINE
     Route: 050
     Dates: start: 20180417, end: 20180417
  17. EMLA [Concomitant]
     Active Substance: LIDOCAINE\PRILOCAINE
     Route: 050
     Dates: start: 20180828
  18. LOCOID [Concomitant]
     Active Substance: HYDROCORTISONE BUTYRATE
     Indication: Eczema infantile
     Route: 050
     Dates: start: 20171225
  19. SYNAGIS [Concomitant]
     Active Substance: PALIVIZUMAB
     Indication: Prophylaxis
     Dosage: 80-100MG/DAY
     Route: 050
     Dates: start: 20171121, end: 20180214
  20. RIVOTRIL [Concomitant]
     Active Substance: CLONAZEPAM
     Indication: Epilepsy
     Route: 050
     Dates: start: 20191230
  21. RIVOTRIL [Concomitant]
     Active Substance: CLONAZEPAM
     Route: 050
  22. PHENOBARBITAL [Concomitant]
     Active Substance: PHENOBARBITAL
     Indication: Epilepsy
     Route: 050
     Dates: start: 20191230
  23. PHENOBARBITAL [Concomitant]
     Active Substance: PHENOBARBITAL
     Route: 050
  24. ENORAS [Concomitant]
     Indication: Nutritional supplementation
     Route: 065
  25. BIFIDOBACTERIUM SPP. [Concomitant]
     Active Substance: BIFIDOBACTERIUM SPP.
     Indication: Abnormal faeces
     Route: 050
     Dates: start: 20200324
  26. LEVETIRACETAM [Concomitant]
     Active Substance: LEVETIRACETAM
     Indication: Epilepsy
     Dosage: 100-400MG/DAY
     Route: 050
     Dates: start: 20200803
  27. LEVOCARNITINE [Concomitant]
     Active Substance: LEVOCARNITINE
     Indication: Prophylaxis
     Route: 050
     Dates: start: 20200513
  28. PULMICORT:RESPULES [Concomitant]
     Indication: Prophylaxis
     Route: 048
     Dates: start: 20210405
  29. HERBAL NOS [Concomitant]
     Active Substance: HERBALS
     Indication: Prophylaxis
     Route: 050
     Dates: start: 20210208
  30. NEXIUM [Concomitant]
     Active Substance: ESOMEPRAZOLE MAGNESIUM
     Indication: Prophylaxis
     Route: 050
     Dates: start: 20191230

REACTIONS (9)
  - Respiratory failure [Recovered/Resolved with Sequelae]
  - Hypoxic-ischaemic encephalopathy [Recovered/Resolved with Sequelae]
  - Upper respiratory tract inflammation [Recovered/Resolved]
  - Infection [Unknown]
  - Dehydration [Not Recovered/Not Resolved]
  - Cardio-respiratory arrest [Not Recovered/Not Resolved]
  - Vomiting [Not Recovered/Not Resolved]
  - Pneumonia aspiration [Unknown]
  - Scoliosis [Unknown]

NARRATIVE: CASE EVENT DATE: 20171223
